FAERS Safety Report 11564002 (Version 1)
Quarter: 2015Q3

REPORT INFORMATION
  Report Type: Report from Study
  Country: MX (occurrence: MX)
  Receive Date: 20150928
  Receipt Date: 20150928
  Transmission Date: 20151125
  Serious: Yes (Other)
  Sender: FDA-Public Use
  Company Number: MX-BAYER-2015-428434

PATIENT
  Age: 42 Year
  Sex: Female

DRUGS (1)
  1. ASPIRINA FORTE [Suspect]
     Active Substance: ASPIRIN\CAFFEINE
     Dosage: UNK UNK, ONCE

REACTIONS (1)
  - Tachycardia [None]
